FAERS Safety Report 6960844-9 (Version None)
Quarter: 2010Q3

REPORT INFORMATION
  Report Type: 
  Country: None (occurrence: None)
  Receive Date: 20100901
  Receipt Date: 20100819
  Transmission Date: 20110219
  Serious: Yes (Other)
  Sender: FDA-Public Use
  Company Number: GB-WATSON-2010-11473

PATIENT
  Age: 37 Year
  Sex: Female

DRUGS (1)
  1. SUMATRIPTAN SUCCINATE (WATSON LABORATORIES) [Suspect]
     Indication: MIGRAINE
     Dosage: UNK
     Route: 065

REACTIONS (1)
  - CHORIORETINOPATHY [None]
